FAERS Safety Report 23942184 (Version 1)
Quarter: 2024Q2

REPORT INFORMATION
  Report Type: Spontaneous
  Country: US (occurrence: None)
  Receive Date: 20240604
  Receipt Date: 20240604
  Transmission Date: 20240716
  Serious: Yes (Death)
  Sender: FDA-Public Use
  Company Number: None

PATIENT
  Age: 73 Year
  Sex: Female

DRUGS (2)
  1. RELYVRIO [Suspect]
     Active Substance: SODIUM PHENYLBUTYRATE\TAURURSODIOL
     Indication: Amyotrophic lateral sclerosis
     Dosage: OTHER QUANTITY : 3/1GM;?FREQUENCY : TWICE A DAY;?OTHER ROUTE : PO OR G-TUBE;?
     Route: 050
     Dates: start: 202308
  2. RADICAVA [Concomitant]
     Active Substance: EDARAVONE

REACTIONS (1)
  - Death [None]

NARRATIVE: CASE EVENT DATE: 20240520
